FAERS Safety Report 8134665-8 (Version None)
Quarter: 2012Q1

REPORT INFORMATION
  Report Type: 
  Country: None (occurrence: None)
  Receive Date: 20120103
  Receipt Date: 20111108
  Transmission Date: 20120608
  Serious: No
  Sender: FDA-Public Use
  Company Number: AE-2011-003209

PATIENT
  Age: 50 Year
  Sex: Female
  Weight: 52.1637 kg

DRUGS (11)
  1. PRILOSEC [Concomitant]
  2. ASPIRIN [Concomitant]
  3. DIAZEPAM [Concomitant]
  4. PEGASYS [Concomitant]
  5. RIBAPACK (RIBAVIRIN) [Concomitant]
  6. METOPROLOL TARTRATE [Concomitant]
  7. VITAMIN E [Concomitant]
  8. INCIVEK [Suspect]
     Dosage: 6 DOSAGE FORMS (2 DOSAGE FORMS, 3 IN 1 D), ORAL
     Route: 048
     Dates: start: 20110916
  9. FISH OIL (FISH OIL) [Concomitant]
  10. WELLBUTRIN [Concomitant]
  11. CYPROHEPTADINE HCL [Concomitant]

REACTIONS (2)
  - BRONCHITIS [None]
  - PAROSMIA [None]
